FAERS Safety Report 7442890-4 (Version None)
Quarter: 2011Q2

REPORT INFORMATION
  Report Type: 
  Country: None (occurrence: None)
  Receive Date: 20110428
  Receipt Date: 20110425
  Transmission Date: 20111010
  Serious: Yes (Death)
  Sender: FDA-Public Use
  Company Number: PHHY2010JP72974

PATIENT
  Sex: Female

DRUGS (12)
  1. CERTICAN [Suspect]
     Dosage: 0.5 MG/DAY
     Route: 048
     Dates: start: 20080604
  2. NEORAL [Suspect]
     Dosage: 90 MG
     Route: 048
  3. CERTICAN [Suspect]
     Indication: HEART TRANSPLANT
     Dosage: 1 MG/DAY
     Route: 048
     Dates: start: 20080512, end: 20080603
  4. CERTICAN [Suspect]
     Dosage: 0.5 MG, UNK
     Dates: start: 20100429, end: 20100731
  5. NEORAL [Suspect]
     Indication: HEART TRANSPLANT
     Dosage: 110 MG
     Route: 048
     Dates: start: 20080311
  6. NEORAL [Suspect]
     Dosage: 70 MG
     Route: 048
     Dates: end: 20100428
  7. NEORAL [Suspect]
     Dosage: 70 MG, UNK
     Dates: start: 20100604, end: 20100616
  8. PREDONINE [Concomitant]
     Indication: HEART TRANSPLANT
     Dosage: 15 MG
     Route: 048
     Dates: start: 20100428, end: 20100603
  9. SEPAMIT [Concomitant]
     Dosage: 10 MG
     Route: 048
     Dates: start: 20100522, end: 20100616
  10. NEORAL [Suspect]
     Dosage: 80 MG
     Route: 048
  11. KREMEZIN [Concomitant]
     Dosage: 3 G
     Route: 048
     Dates: start: 20100525, end: 20100616
  12. AMLODIN [Concomitant]
     Dosage: 5 MG
     Route: 048
     Dates: start: 20100529, end: 20100616

REACTIONS (8)
  - RENAL FAILURE CHRONIC [None]
  - IMMUNOSUPPRESSANT DRUG LEVEL INCREASED [None]
  - GLOMERULOSCLEROSIS [None]
  - RENAL IMPAIRMENT [None]
  - PNEUMONIA [None]
  - BLOOD CREATINE INCREASED [None]
  - BLOOD UREA INCREASED [None]
  - NEPHROPATHY [None]
